FAERS Safety Report 5623127-5 (Version None)
Quarter: 2008Q1

REPORT INFORMATION
  Report Type: 
  Country: None (occurrence: None)
  Receive Date: 20080212
  Receipt Date: 20080207
  Transmission Date: 20080703
  Serious: Yes (Other)
  Sender: FDA-Public Use
  Company Number: B0504172A

PATIENT
  Age: 10 Year
  Sex: Male
  Weight: 30 kg

DRUGS (6)
  1. RELENZA [Suspect]
     Indication: INFLUENZA
     Dosage: 10MG TWICE PER DAY
     Route: 055
     Dates: start: 20080115, end: 20080117
  2. CALONAL [Concomitant]
     Indication: DRUG USE FOR UNKNOWN INDICATION
     Route: 048
  3. ASVERIN [Concomitant]
     Dosage: 10MG THREE TIMES PER DAY
     Route: 048
     Dates: start: 20080115, end: 20080116
  4. LAC B [Concomitant]
     Dosage: 3G PER DAY
     Route: 048
     Dates: start: 20080116, end: 20080118
  5. PERIACTIN [Concomitant]
     Dosage: .6G PER DAY
     Route: 048
     Dates: start: 20080116, end: 20080118
  6. CHINESE MEDICINE [Concomitant]
     Indication: NASAL CONGESTION
     Route: 048
     Dates: start: 20080119, end: 20080122

REACTIONS (1)
  - ABNORMAL BEHAVIOUR [None]
